FAERS Safety Report 18327493 (Version 1)
Quarter: 2020Q3

REPORT INFORMATION
  Report Type: Report from Study
  Country: AR (occurrence: AR)
  Receive Date: 20200929
  Receipt Date: 20200929
  Transmission Date: 20201103
  Serious: Yes (Hospitalization)
  Sender: FDA-Public Use
  Company Number: AR-SEATTLE GENETICS-2020SGN04338

PATIENT
  Age: 61 Year
  Sex: Male

DRUGS (1)
  1. BRENTUXIMAB VEDOTIN?MPI [Suspect]
     Active Substance: BRENTUXIMAB VEDOTIN
     Indication: PRODUCT USED FOR UNKNOWN INDICATION
     Dosage: 50 MG
     Route: 042
     Dates: start: 20200918, end: 20200919

REACTIONS (5)
  - Blood pressure increased [Unknown]
  - Dyspnoea [Unknown]
  - Headache [Unknown]
  - Dysphonia [Unknown]
  - Chest pain [Unknown]

NARRATIVE: CASE EVENT DATE: 20200918
